FAERS Safety Report 8070666 (Version 2)
Quarter: 2024Q4

REPORT INFORMATION
  Report Type: Spontaneous
  Country: PL (occurrence: PL)
  Receive Date: 20110805
  Receipt Date: 20241023
  Transmission Date: 20250115
  Serious: Yes (Death, Other)
  Sender: ASTELLAS
  Company Number: PL-ASTELLAS-2011EU005113

PATIENT
  Age: 61 Year
  Sex: Female

DRUGS (3)
  1. PROGRAF [Suspect]
     Active Substance: TACROLIMUS
     Indication: Renal transplant
     Route: 065
  2. MYFORTIC [Suspect]
     Active Substance: MYCOPHENOLATE SODIUM
     Indication: Renal transplant
     Route: 065
  3. PREDNISONE [Suspect]
     Active Substance: PREDNISONE
     Indication: Renal transplant
     Dosage: STEROIDS
     Route: 065

REACTIONS (2)
  - Neuroendocrine carcinoma of the skin [Fatal]
  - Hepatitis C virus test positive [Unknown]

NARRATIVE: CASE EVENT DATE: 20100201
